FAERS Safety Report 16134271 (Version 3)
Quarter: 2019Q4

REPORT INFORMATION
  Report Type: Spontaneous
  Country: JP (occurrence: JP)
  Receive Date: 20190329
  Receipt Date: 20191023
  Transmission Date: 20200122
  Serious: Yes (Hospitalization, Other)
  Sender: FDA-Public Use
  Company Number: JP-JNJFOC-20181141939

PATIENT
  Age: 8 Decade
  Sex: Male

DRUGS (5)
  1. PREDONINE [Suspect]
     Active Substance: PREDNISOLONE
     Route: 065
  2. ZYTIGA [Suspect]
     Active Substance: ABIRATERONE ACETATE
     Route: 048
     Dates: start: 20181227
  3. ZYTIGA [Suspect]
     Active Substance: ABIRATERONE ACETATE
     Route: 048
  4. ZYTIGA [Suspect]
     Active Substance: ABIRATERONE ACETATE
     Indication: PROSTATE CANCER
     Dosage: STRENGTH: 250 MG
     Route: 048
  5. PREDONINE [Suspect]
     Active Substance: PREDNISOLONE
     Indication: PRODUCT USED FOR UNKNOWN INDICATION
     Route: 065

REACTIONS (3)
  - Hepatic function abnormal [Recovered/Resolved]
  - Decreased appetite [Not Recovered/Not Resolved]
  - Hepatic cancer [Unknown]

NARRATIVE: CASE EVENT DATE: 2018
